FAERS Safety Report 20439227 (Version 1)
Quarter: 2022Q1

REPORT INFORMATION
  Report Type: Spontaneous
  Country: CA (occurrence: CA)
  Receive Date: 20220207
  Receipt Date: 20220207
  Transmission Date: 20220423
  Serious: Yes (Other)
  Sender: FDA-Public Use
  Company Number: CA-TEVA-2022-CA-2004023

PATIENT
  Sex: Female
  Weight: 81 kg

DRUGS (28)
  1. ACETAMINOPHEN [Suspect]
     Active Substance: ACETAMINOPHEN
     Indication: Product used for unknown indication
     Route: 065
  2. LEFLUNOMIDE [Suspect]
     Active Substance: LEFLUNOMIDE
     Indication: Product used for unknown indication
     Route: 065
  3. METHOTREXATE [Suspect]
     Active Substance: METHOTREXATE
     Indication: Product used for unknown indication
     Route: 065
  4. SULFAMETHOXAZOLE AND TRIMETHOPRIM [Suspect]
     Active Substance: SULFAMETHOXAZOLE\TRIMETHOPRIM
     Indication: Product used for unknown indication
     Route: 065
  5. ACTEMRA [Suspect]
     Active Substance: TOCILIZUMAB
     Indication: Product used for unknown indication
     Route: 065
  6. ARAVA [Suspect]
     Active Substance: LEFLUNOMIDE
     Indication: Product used for unknown indication
     Route: 065
  7. CHLORAPREP ONE-STEP [Suspect]
     Active Substance: CHLORHEXIDINE GLUCONATE\ISOPROPYL ALCOHOL
     Indication: Product used for unknown indication
     Route: 061
  8. CIMZIA [Suspect]
     Active Substance: CERTOLIZUMAB PEGOL
     Indication: Rheumatoid arthritis
     Route: 058
  9. CIMZIA [Suspect]
     Active Substance: CERTOLIZUMAB PEGOL
     Route: 058
  10. ENBREL [Suspect]
     Active Substance: ETANERCEPT
     Indication: Rheumatoid arthritis
     Route: 058
  11. ALFACALCIDOL [Suspect]
     Active Substance: ALFACALCIDOL
     Route: 065
  12. ORENCIA [Suspect]
     Active Substance: ABATACEPT
     Indication: Product used for unknown indication
     Route: 065
  13. OXYCODONE TEREPHTHALATE [Suspect]
     Active Substance: OXYCODONE TEREPHTHALATE
     Indication: Product used for unknown indication
     Route: 065
  14. PERIOGARD [Suspect]
     Active Substance: CHLORHEXIDINE GLUCONATE
     Indication: Product used for unknown indication
     Route: 065
  15. SIMPONI [Suspect]
     Active Substance: GOLIMUMAB
     Indication: Product used for unknown indication
     Route: 058
  16. ASCORBIC ACID [Concomitant]
     Active Substance: ASCORBIC ACID
  17. CHOLECALCIFEROL [Concomitant]
     Active Substance: CHOLECALCIFEROL
  18. DESOGESTREL/ETHINYL [Concomitant]
  19. FISH OIL [Concomitant]
     Active Substance: FISH OIL
  20. IBUPROFEN [Concomitant]
     Active Substance: IBUPROFEN
  21. PANTOLOC /01263204 [Concomitant]
  22. PANTOPRAZOLE [Concomitant]
     Active Substance: PANTOPRAZOLE
  23. PLAQUENIL [Concomitant]
     Active Substance: HYDROXYCHLOROQUINE SULFATE
  24. PREDNISONE [Concomitant]
     Active Substance: PREDNISONE
  25. ALBUTEROL [Concomitant]
     Active Substance: ALBUTEROL
  26. TYLENOL [Concomitant]
     Active Substance: ACETAMINOPHEN
  27. UBIDECARENONE [Concomitant]
     Active Substance: UBIDECARENONE
  28. ZOPICLONE [Concomitant]
     Active Substance: ZOPICLONE

REACTIONS (20)
  - Abdominal pain upper [Unknown]
  - Asthenia [Unknown]
  - Back pain [Unknown]
  - Body temperature increased [Unknown]
  - Diarrhoea [Unknown]
  - Ear pain [Unknown]
  - Headache [Unknown]
  - Insomnia [Unknown]
  - Joint swelling [Unknown]
  - Lower respiratory tract infection [Unknown]
  - Muscle spasticity [Unknown]
  - Night sweats [Unknown]
  - Pain [Unknown]
  - Peripheral swelling [Unknown]
  - Pruritus [Unknown]
  - Rash [Unknown]
  - Respiratory disorder [Unknown]
  - Sinusitis [Unknown]
  - Urticaria [Unknown]
  - Vomiting [Unknown]
